FAERS Safety Report 21384834 (Version 1)
Quarter: 2022Q3

REPORT INFORMATION
  Report Type: Spontaneous
  Country: HU (occurrence: HU)
  Receive Date: 20220928
  Receipt Date: 20220928
  Transmission Date: 20221027
  Serious: Yes (Disabling, Other)
  Sender: FDA-Public Use
  Company Number: HU-AMGEN-HUNSP2022165885

PATIENT
  Age: 39 Year
  Sex: Male

DRUGS (1)
  1. XGEVA [Suspect]
     Active Substance: DENOSUMAB
     Indication: Bone giant cell tumour
     Route: 065

REACTIONS (3)
  - Wrist deformity [Unknown]
  - Pathological fracture [Recovered/Resolved]
  - Bone giant cell tumour [Recovered/Resolved]
